FAERS Safety Report 5678722-4 (Version None)
Quarter: 2008Q1

REPORT INFORMATION
  Report Type: 
  Country: None (occurrence: None)
  Receive Date: 20080321
  Receipt Date: 20080304
  Transmission Date: 20080703
  Serious: Yes (Hospitalization)
  Sender: FDA-Public Use
  Company Number: 2008BI006025

PATIENT
  Sex: Female

DRUGS (1)
  1. AVONEX [Suspect]
     Indication: MULTIPLE SCLEROSIS
     Dosage: IM
     Route: 030
     Dates: start: 19990201

REACTIONS (5)
  - HIP ARTHROPLASTY [None]
  - KNEE ARTHROPLASTY [None]
  - MULTIPLE SCLEROSIS [None]
  - PYREXIA [None]
  - UPPER LIMB FRACTURE [None]
